FAERS Safety Report 10595342 (Version 1)
Quarter: 2014Q4

REPORT INFORMATION
  Report Type: Spontaneous
  Country: US (occurrence: None)
  Receive Date: 20141119
  Receipt Date: 20141119
  Transmission Date: 20150529
  Serious: Yes (Other)
  Sender: FDA-Public Use
  Company Number: None

PATIENT
  Age: 37 Year
  Sex: Female
  Weight: 63.5 kg

DRUGS (1)
  1. NASACORT [Suspect]
     Active Substance: TRIAMCINOLONE ACETONIDE
     Indication: MULTIPLE ALLERGIES
     Route: 055
     Dates: start: 20140228, end: 20140526

REACTIONS (6)
  - Dizziness [None]
  - Panic attack [None]
  - Blood glucose decreased [None]
  - Heart rate increased [None]
  - Vision blurred [None]
  - Suicidal ideation [None]

NARRATIVE: CASE EVENT DATE: 20140526
